FAERS Safety Report 10061961 (Version 2)
Quarter: 2015Q4

REPORT INFORMATION
  Report Type: Report from Study
  Country: JP (occurrence: JP)
  Receive Date: 20140407
  Receipt Date: 20151228
  Transmission Date: 20160304
  Serious: Yes (Other)
  Sender: FDA-Public Use
  Company Number: JP-ASTELLAS-2014JP003089

PATIENT
  Age: 0 Day

DRUGS (19)
  1. PREDNISOLONE. [Concomitant]
     Active Substance: PREDNISOLONE
     Route: 064
     Dates: start: 20121003, end: 20121130
  2. PREDNISOLONE. [Concomitant]
     Active Substance: PREDNISOLONE
     Route: 064
     Dates: start: 20121229, end: 20130111
  3. THYRADIN [Concomitant]
     Active Substance: LEVOTHYROXINE
     Indication: FOETAL EXPOSURE DURING PREGNANCY
     Dosage: UNK UNK, UNKNOWN FREQ.
     Route: 064
  4. PREDNISOLONE. [Concomitant]
     Active Substance: PREDNISOLONE
     Route: 064
     Dates: start: 20121201, end: 20121228
  5. VITAMEDIN                          /00274301/ [Concomitant]
     Indication: FOETAL EXPOSURE DURING PREGNANCY
     Dosage: UNK UNK, UNKNOWN FREQ.
     Route: 064
  6. PREDNISOLONE. [Concomitant]
     Active Substance: PREDNISOLONE
     Indication: FOETAL EXPOSURE DURING PREGNANCY
     Route: 064
     Dates: start: 2012, end: 20121002
  7. GLAKAY [Concomitant]
     Active Substance: MENATETRENONE
     Indication: FOETAL EXPOSURE DURING PREGNANCY
     Dosage: UNK UNK, UNKNOWN FREQ.
     Route: 064
  8. COMELIAN [Concomitant]
     Active Substance: DILAZEP
     Indication: FOETAL EXPOSURE DURING PREGNANCY
     Dosage: UNK UNK, UNKNOWN FREQ.
     Route: 064
  9. ALFAROL [Concomitant]
     Active Substance: ALFACALCIDOL
     Indication: FOETAL EXPOSURE DURING PREGNANCY
     Dosage: UNK UNK, UNKNOWN FREQ.
     Route: 064
  10. PREDNISOLONE. [Concomitant]
     Active Substance: PREDNISOLONE
     Route: 064
     Dates: start: 20130123, end: 20130226
  11. ACINON [Concomitant]
     Active Substance: NIZATIDINE
     Indication: FOETAL EXPOSURE DURING PREGNANCY
     Dosage: UNK UNK, UNKNOWN FREQ.
     Route: 064
  12. BAYASPIRIN [Concomitant]
     Active Substance: ASPIRIN
     Indication: FOETAL EXPOSURE DURING PREGNANCY
     Dosage: UNK UNK, UNKNOWN FREQ.
     Route: 064
  13. PREDNISOLONE. [Concomitant]
     Active Substance: PREDNISOLONE
     Route: 064
     Dates: start: 20130227, end: 20130320
  14. SALIGREN [Concomitant]
     Indication: FOETAL EXPOSURE DURING PREGNANCY
     Dosage: UNK UNK, UNKNOWN FREQ.
     Route: 064
  15. DEPAS [Concomitant]
     Active Substance: ETIZOLAM
     Indication: FOETAL EXPOSURE DURING PREGNANCY
     Dosage: UNK UNK, UNKNOWN FREQ.
     Route: 064
  16. BONALON [Concomitant]
     Active Substance: ALENDRONATE SODIUM
     Indication: FOETAL EXPOSURE DURING PREGNANCY
     Dosage: UNK UNK, UNKNOWN FREQ.
     Route: 064
  17. TACROLIMUS. [Suspect]
     Active Substance: TACROLIMUS
     Indication: FOETAL EXPOSURE DURING PREGNANCY
     Route: 064
     Dates: start: 2012, end: 20121005
  18. PREDNISOLONE. [Concomitant]
     Active Substance: PREDNISOLONE
     Route: 064
     Dates: start: 20130112, end: 20130122
  19. MUCODYNE [Concomitant]
     Active Substance: CARBOCYSTEINE
     Indication: FOETAL EXPOSURE DURING PREGNANCY
     Dosage: UNK UNK, UNKNOWN FREQ.
     Route: 064

REACTIONS (1)
  - Foetal distress syndrome [Unknown]

NARRATIVE: CASE EVENT DATE: 20130320
